FAERS Safety Report 18596243 (Version 1)
Quarter: 2020Q4

REPORT INFORMATION
  Report Type: Spontaneous
  Country: FR (occurrence: FR)
  Receive Date: 20201209
  Receipt Date: 20201209
  Transmission Date: 20210114
  Serious: Yes (Life-Threatening, Hospitalization)
  Sender: FDA-Public Use
  Company Number: FR-TEVA-2020-FR-1855676

PATIENT
  Age: 73 Year
  Sex: Male
  Weight: 80 kg

DRUGS (2)
  1. VENLAFAXINE TEVA LP 37,5 MG, GELULE A LIBERATION PROLONGEE [Suspect]
     Active Substance: VENLAFAXINE HYDROCHLORIDE
     Indication: DEPRESSION
     Dosage: UNIT DOSE : 37.5 MG
     Route: 048
     Dates: end: 20201010
  2. DICLOFENAC MYLAN LP 75 MG, COMPRIME ENROBE A LIBERATION PROLONGEE [Suspect]
     Active Substance: DICLOFENAC SODIUM
     Indication: ARTHRALGIA
     Dosage: UNIT DOSE : 150 MG
     Route: 048
     Dates: start: 20201003, end: 20201010

REACTIONS (2)
  - Blood loss anaemia [Not Recovered/Not Resolved]
  - Rectal haemorrhage [Recovered/Resolved]

NARRATIVE: CASE EVENT DATE: 20201010
